FAERS Safety Report 7827531-6 (Version None)
Quarter: 2011Q4

REPORT INFORMATION
  Report Type: 
  Country: None (occurrence: None)
  Receive Date: 20111020
  Receipt Date: 20111012
  Transmission Date: 20120403
  Serious: Yes (Hospitalization)
  Sender: FDA-Public Use
  Company Number: PHEH2011US06606

PATIENT
  Sex: Male
  Weight: 107.94 kg

DRUGS (1)
  1. FANAPT [Suspect]
     Dosage: UNK UKN, UNK

REACTIONS (5)
  - OEDEMA [None]
  - GENERALISED OEDEMA [None]
  - PAIN IN EXTREMITY [None]
  - DYSPNOEA [None]
  - GAIT DISTURBANCE [None]
